FAERS Safety Report 4542269-9 (Version None)
Quarter: 2004Q4

REPORT INFORMATION
  Report Type: 
  Country: None (occurrence: None)
  Receive Date: 20041227
  Receipt Date: 20041212
  Transmission Date: 20050328
  Serious: Yes (Hospitalization)
  Sender: FDA-Public Use
  Company Number: 2004103586

PATIENT
  Age: 72 Year
  Sex: Female

DRUGS (14)
  1. AMLODIPINE [Suspect]
     Indication: HYPERTENSION
     Dosage: 5 MG (1 D), ORAL
     Route: 048
     Dates: start: 19980101
  2. QUINAPRIL HCL [Suspect]
     Indication: HYPERTENSION
     Dosage: 20 MG (1 D), ORAL
     Route: 048
     Dates: start: 20040503
  3. SERTRALINE HCL [Suspect]
     Indication: DEPRESSION
     Dosage: 50 MG (1 D), ORAL
     Route: 048
     Dates: start: 20030505
  4. LISINOPRIL [Suspect]
     Indication: HYPERTENSION
     Dosage: 40 MG (1 D), ORAL
     Route: 048
     Dates: start: 19980101
  5. DONEPEZIL           (DONEPEZIL) [Suspect]
     Indication: DEMENTIA ALZHEIMER'S TYPE
     Dosage: 10 MG (1 D), ORAL
     Route: 048
     Dates: start: 20010401
  6. ASPIRIN [Concomitant]
  7. ASCORBIC ACID [Concomitant]
  8. TOCOPHEROL CONCENTRATE CAP [Concomitant]
  9. MULTI-VITAMINS [Concomitant]
  10. CALCIUM (CALCIUM) [Concomitant]
  11. RALOXIFENE HCL [Concomitant]
  12. ESCITALOPRAM (ESCITALOPRAM) [Concomitant]
  13. ARIPIPRAZOLE (ARIPIPRAZOLE) [Concomitant]
  14. RISPERDAL [Concomitant]

REACTIONS (7)
  - AGITATION [None]
  - DEMENTIA ALZHEIMER'S TYPE [None]
  - DEPRESSION [None]
  - DIZZINESS [None]
  - HALLUCINATION [None]
  - OSTEOPOROSIS [None]
  - OVERDOSE [None]
